FAERS Safety Report 8127397-3 (Version None)
Quarter: 2012Q1

REPORT INFORMATION
  Report Type: 
  Country: None (occurrence: None)
  Receive Date: 20120210
  Receipt Date: 20120207
  Transmission Date: 20120608
  Serious: Yes (Hospitalization)
  Sender: FDA-Public Use
  Company Number: US-BAYER-2012-012534

PATIENT
  Age: 25 Year
  Sex: Female

DRUGS (1)
  1. BEYAZ [Suspect]
     Indication: CONTRACEPTION
     Dosage: UNK UNK, CONT
     Dates: start: 20110812

REACTIONS (2)
  - HAEMOPTYSIS [None]
  - PULMONARY EMBOLISM [None]
